FAERS Safety Report 11488737 (Version 5)
Quarter: 2015Q3

REPORT INFORMATION
  Report Type: Report from Study
  Country: CZ (occurrence: CZ)
  Receive Date: 20150909
  Receipt Date: 20150930
  Transmission Date: 20151125
  Serious: Yes (Death, Hospitalization, Other)
  Sender: FDA-Public Use
  Company Number: CZ-GLAXOSMITHKLINE-CZ2015118251

PATIENT
  Age: 71 Year
  Sex: Female
  Weight: 75 kg

DRUGS (25)
  1. DEGAN [Concomitant]
     Active Substance: METOCLOPRAMIDE HYDROCHLORIDE
     Indication: PROPHYLAXIS OF NAUSEA AND VOMITING
     Route: 042
     Dates: start: 20150819, end: 20150819
  2. HELICID [Concomitant]
     Indication: PROPHYLAXIS AGAINST GASTROINTESTINAL ULCER
     Route: 048
     Dates: start: 20150823, end: 20150903
  3. DITHIADEN [Concomitant]
     Active Substance: BISULEPIN
     Route: 042
     Dates: start: 20150825, end: 20150825
  4. FUROSEMID FORTE [Concomitant]
     Indication: PNEUMONIA
     Route: 042
     Dates: start: 20150831, end: 20150831
  5. AFITEN [Concomitant]
     Indication: HYPERTENSION
     Route: 048
     Dates: start: 20150902, end: 20150902
  6. SODIUM CHLORIDE SOLUTION [Concomitant]
     Active Substance: SODIUM CHLORIDE
     Indication: FLUID REPLACEMENT
     Route: 042
     Dates: start: 20150816, end: 20150905
  7. TRAMAL [Concomitant]
     Active Substance: TRAMADOL
     Indication: PNEUMONIA
     Route: 042
     Dates: start: 20150901, end: 20150902
  8. HUMULIN R [Concomitant]
     Active Substance: INSULIN HUMAN
     Route: 042
     Dates: start: 20150903, end: 20150903
  9. GLUCOSE [Concomitant]
     Active Substance: DEXTROSE
     Indication: PRODUCT USED FOR UNKNOWN INDICATION
     Route: 042
     Dates: start: 20150902, end: 20150903
  10. ELTROMBOPAG [Suspect]
     Active Substance: ELTROMBOPAG
     Indication: THROMBOCYTOPENIA
  11. DITHIADEN [Concomitant]
     Active Substance: BISULEPIN
     Indication: PREMEDICATION
     Dosage: 1 UNK, SINGLE
     Route: 042
     Dates: start: 20150821, end: 20150821
  12. SODIUM CHLORIDE. [Concomitant]
     Active Substance: SODIUM CHLORIDE
     Indication: FLUID REPLACEMENT
     Route: 042
     Dates: start: 20150902, end: 20150902
  13. CERNEVIT [Concomitant]
     Active Substance: VITAMINS
     Indication: SUPPLEMENTATION THERAPY
     Route: 042
     Dates: start: 20150826, end: 20150904
  14. CODEIN [Concomitant]
     Active Substance: CODEINE
     Indication: PNEUMONIA
     Route: 048
     Dates: start: 20150828, end: 20150904
  15. MAGNESIUM SULFATE. [Concomitant]
     Active Substance: MAGNESIUM SULFATE
     Indication: SUPPLEMENTATION THERAPY
     Route: 042
     Dates: start: 20150816, end: 20150905
  16. HYDROCORTISONE. [Concomitant]
     Active Substance: HYDROCORTISONE
     Indication: PREMEDICATION
     Route: 042
     Dates: start: 20150822, end: 20150905
  17. KALNORMIN [Concomitant]
     Active Substance: POTASSIUM CHLORIDE
     Indication: PROPHYLAXIS
     Route: 048
     Dates: start: 20150825, end: 20150826
  18. AZACITIDINE. [Concomitant]
     Active Substance: AZACITIDINE
     Indication: MYELODYSPLASTIC SYNDROME
     Dosage: 75 MG/M2, CYC
     Route: 058
     Dates: start: 20150224
  19. TAZOCIN [Concomitant]
     Active Substance: PIPERACILLIN SODIUM\TAZOBACTAM SODIUM
     Indication: INFECTION PROPHYLAXIS
     Dosage: 1 UNK, QID
     Route: 042
     Dates: start: 20150816, end: 20150817
  20. KALIUM CHLORIDE [Concomitant]
     Indication: SUPPLEMENTATION THERAPY
     Route: 042
     Dates: start: 20150818, end: 20150818
  21. HUMULIN R [Concomitant]
     Active Substance: INSULIN HUMAN
     Indication: PRODUCT USED FOR UNKNOWN INDICATION
     Route: 042
     Dates: start: 20150827, end: 20150827
  22. HUMULIN R [Concomitant]
     Active Substance: INSULIN HUMAN
     Route: 042
     Dates: start: 20150829, end: 20150902
  23. ELTROMBOPAG [Suspect]
     Active Substance: ELTROMBOPAG
     Indication: MYELODYSPLASTIC SYNDROME
     Dosage: UNK, QD
     Route: 048
     Dates: start: 20150224
  24. OLIMEL [Concomitant]
     Active Substance: AMINO ACIDS\DEXTROSE\SOYBEAN OIL
     Indication: SUPPLEMENTATION THERAPY
     Route: 042
     Dates: start: 20150826, end: 20150904
  25. TRACUTIL [Concomitant]
     Indication: PRODUCT USED FOR UNKNOWN INDICATION
     Route: 042
     Dates: start: 20150826, end: 20150904

REACTIONS (6)
  - Diarrhoea [Recovered/Resolved]
  - Dehydration [Fatal]
  - Pulmonary embolism [Fatal]
  - Renal neoplasm [Recovered/Resolved with Sequelae]
  - Pyrexia [Fatal]
  - Pneumonia [Fatal]

NARRATIVE: CASE EVENT DATE: 20150816
